FAERS Safety Report 4954275-0 (Version None)
Quarter: 2006Q1

REPORT INFORMATION
  Report Type: 
  Country: None (occurrence: None)
  Receive Date: 20060327
  Receipt Date: 20051027
  Transmission Date: 20060701
  Serious: Yes (Hospitalization, Other)
  Sender: FDA-Public Use
  Company Number: US-BRISTOL-MYERS SQUIBB COMPANY-13159249

PATIENT
  Age: 66 Year
  Sex: Female
  Weight: 64 kg

DRUGS (2)
  1. GLUCOVANCE [Suspect]
     Indication: DIABETES MELLITUS NON-INSULIN-DEPENDENT
     Dosage: DOSAGE FORM = 1/2 TABLET IN AM AND 1/2 TABLET IN PM
     Route: 048
     Dates: start: 20020902
  2. PREPARATION H [Concomitant]

REACTIONS (8)
  - ANAL DISCOMFORT [None]
  - BLOOD GLUCOSE INCREASED [None]
  - CONSTIPATION [None]
  - DRY EYE [None]
  - DRY MOUTH [None]
  - DRY SKIN [None]
  - FEELING HOT [None]
  - URINARY TRACT INFECTION [None]
